FAERS Safety Report 9982065 (Version 2)
Quarter: 2014Q1

REPORT INFORMATION
  Report Type: Report from Study
  Country: US (occurrence: US)
  Receive Date: 20140307
  Receipt Date: 20140307
  Transmission Date: 20141002
  Serious: No
  Sender: FDA-Public Use
  Company Number: US-ABBVIE-13P-163-1170830-00

PATIENT
  Age: 25 Year
  Sex: Male

DRUGS (1)
  1. HUMIRA [Suspect]
     Indication: CROHN^S DISEASE
     Dates: start: 20130929, end: 20131110

REACTIONS (5)
  - Fatigue [Not Recovered/Not Resolved]
  - Dizziness postural [Recovering/Resolving]
  - Activities of daily living impaired [Unknown]
  - Insomnia [Not Recovered/Not Resolved]
  - Labyrinthitis [Not Recovered/Not Resolved]
